FAERS Safety Report 6432950-9 (Version None)
Quarter: 2009Q4

REPORT INFORMATION
  Report Type: 
  Country: None (occurrence: None)
  Receive Date: 20091109
  Receipt Date: 20091105
  Transmission Date: 20100525
  Serious: Yes (Hospitalization)
  Sender: FDA-Public Use
  Company Number: NO-BRISTOL-MYERS SQUIBB COMPANY-14843932

PATIENT
  Age: 55 Year
  Sex: Female

DRUGS (8)
  1. ORENCIA [Suspect]
     Indication: RHEUMATOID ARTHRITIS
     Route: 040
     Dates: start: 20090130, end: 20090724
  2. LEVOTHYROXINE SODIUM [Concomitant]
     Indication: HYPOTHYROIDISM
     Route: 048
  3. PREDNISOLONE [Concomitant]
     Indication: RHEUMATOID ARTHRITIS
     Route: 048
  4. METOJECT [Concomitant]
     Indication: RHEUMATOID ARTHRITIS
  5. IMOVANE [Concomitant]
  6. ACETAMINOPHEN [Concomitant]
  7. CALCIUM [Concomitant]
  8. FOLIC ACID [Concomitant]
     Route: 048

REACTIONS (2)
  - DYSPNOEA [None]
  - PERICARDIAL EFFUSION [None]
